FAERS Safety Report 4358029-8 (Version None)
Quarter: 2004Q2

REPORT INFORMATION
  Report Type: 
  Country: None (occurrence: None)
  Receive Date: 20040510
  Receipt Date: 20040427
  Transmission Date: 20050107
  Serious: No
  Sender: FDA-Public Use
  Company Number: 2004UW08559

PATIENT
  Age: 62 Year
  Sex: Male
  Weight: 99.7913 kg

DRUGS (4)
  1. CRESTOR [Suspect]
     Indication: BLOOD CHOLESTEROL INCREASED
     Dosage: 10 MG PO
     Route: 048
     Dates: start: 20040414
  2. COUMADIN [Concomitant]
  3. NORVASC [Concomitant]
  4. VITAMIN B COMPLEX CAP [Concomitant]

REACTIONS (1)
  - ILEUS [None]
